FAERS Safety Report 6349846-3 (Version None)
Quarter: 2009Q3

REPORT INFORMATION
  Report Type: 
  Country: None (occurrence: None)
  Receive Date: 20090911
  Receipt Date: 20090907
  Transmission Date: 20100115
  Serious: Yes (Hospitalization)
  Sender: FDA-Public Use
  Company Number: PHHO2009FR03853

PATIENT
  Sex: Female
  Weight: 71 kg

DRUGS (6)
  1. RAD 666 RAD+TAB+CMAS [Suspect]
     Indication: BREAST CANCER
     Dosage: 5 MG, QD
     Route: 048
     Dates: start: 20090226, end: 20090312
  2. NAVELBINE [Suspect]
     Indication: BREAST CANCER
     Dosage: 142 MG, UNK
     Route: 042
  3. HERCEPTIN [Concomitant]
     Indication: BREAST CANCER
     Dosage: 5 MG, QD
     Route: 042
  4. LEVOTHYROXINE SODIUM [Concomitant]
     Indication: HYPOTHYROIDISM
     Dosage: UNK
  5. PROPOFAN [Concomitant]
     Indication: PAIN
  6. ZOMETA [Concomitant]
     Indication: METASTASES TO BONE
     Dosage: UNK

REACTIONS (1)
  - FEBRILE NEUTROPENIA [None]
